FAERS Safety Report 6601876-X (Version None)
Quarter: 2010Q1

REPORT INFORMATION
  Report Type: 
  Country: None (occurrence: None)
  Receive Date: 20100218
  Receipt Date: 20100224
  Transmission Date: 20100710
  Serious: Yes (Life-Threatening, Hospitalization, Other)
  Sender: FDA-Public Use
  Company Number: 1-21577291

PATIENT
  Age: 72 Year
  Sex: Male

DRUGS (2)
  1. AMIODARONE HCL [Suspect]
     Indication: SUPRAVENTRICULAR TACHYARRHYTHMIA
     Dosage: 400 MG PER CLAY, ORAL
     Route: 048
     Dates: start: 20070501
  2. CARVEDILOL [Concomitant]

REACTIONS (4)
  - BRADYPHRENIA [None]
  - HYPOTHYROIDISM [None]
  - RENAL IMPAIRMENT [None]
  - SPEECH DISORDER [None]
